FAERS Safety Report 5009514-7 (Version None)
Quarter: 2006Q2

REPORT INFORMATION
  Report Type: 
  Country: None (occurrence: None)
  Receive Date: 20060524
  Receipt Date: 20060516
  Transmission Date: 20061013
  Serious: Yes (Hospitalization)
  Sender: FDA-Public Use
  Company Number: FR-AVENTIS-200615268GDDC

PATIENT
  Age: 6 Year
  Sex: Female

DRUGS (1)
  1. DESMOPRESSIN [Suspect]
     Indication: ENURESIS
     Dosage: DOSE: UNK
     Route: 045

REACTIONS (1)
  - THROMBOTIC THROMBOCYTOPENIC PURPURA [None]
